FAERS Safety Report 25335208 (Version 3)
Quarter: 2025Q2

REPORT INFORMATION
  Report Type: Report from Study
  Country: PH (occurrence: PH)
  Receive Date: 20250520
  Receipt Date: 20250606
  Transmission Date: 20250716
  Serious: Yes (Hospitalization)
  Sender: ROCHE
  Company Number: PH-ROCHE-10000283327

PATIENT
  Age: 46 Year
  Sex: Male
  Weight: 74 kg

DRUGS (5)
  1. TECENTRIQ [Suspect]
     Active Substance: ATEZOLIZUMAB
     Indication: Product used for unknown indication
     Route: 065
  2. AVASTIN [Suspect]
     Active Substance: BEVACIZUMAB
     Indication: Product used for unknown indication
     Route: 065
  3. Vitamins B Complex [Concomitant]
     Dates: start: 20250507, end: 20250529
  4. URSODIOL [Concomitant]
     Active Substance: URSODIOL
     Dosage: 2 TABLETS
     Dates: start: 20250529, end: 20250529
  5. Transmetil [Concomitant]
     Dosage: 1 CAPSULE
     Dates: start: 20250507, end: 20250529

REACTIONS (4)
  - Gastrointestinal haemorrhage [Recovered/Resolved]
  - Haematochezia [Unknown]
  - Chest pain [Unknown]
  - Hypotension [Unknown]
